FAERS Safety Report 24327634 (Version 1)
Quarter: 2024Q3

REPORT INFORMATION
  Report Type: Spontaneous
  Country: CA (occurrence: CA)
  Receive Date: 20240917
  Receipt Date: 20240917
  Transmission Date: 20241017
  Serious: Yes (Disabling)
  Sender: TEVA
  Company Number: CA-TEVA-VS-3242928

PATIENT
  Age: 56 Year
  Sex: Female
  Weight: 88 kg

DRUGS (2)
  1. VALSARTAN [Suspect]
     Active Substance: VALSARTAN
     Indication: Hypertension
     Route: 048
  2. SYNTHROID [Concomitant]
     Active Substance: LEVOTHYROXINE SODIUM
     Indication: Product used for unknown indication
     Route: 065

REACTIONS (5)
  - Joint range of motion decreased [Recovered/Resolved]
  - Tendon disorder [Recovered/Resolved]
  - Paraesthesia [Recovered/Resolved]
  - Muscle tightness [Recovered/Resolved]
  - Muscle spasms [Recovered/Resolved]
